FAERS Safety Report 6475583-0 (Version None)
Quarter: 2009Q4

REPORT INFORMATION
  Report Type: 
  Country: None (occurrence: None)
  Receive Date: 20091204
  Receipt Date: 20091123
  Transmission Date: 20100525
  Serious: Yes (Death, Hospitalization, Other)
  Sender: FDA-Public Use
  Company Number: US-MERCK-0908USA02519

PATIENT
  Age: 82 Year
  Sex: Female

DRUGS (3)
  1. FOSAMAX [Suspect]
     Route: 048
     Dates: start: 20040101, end: 20060101
  2. FOSAMAX [Suspect]
     Route: 048
     Dates: start: 20050101, end: 20060101
  3. ZOMETA [Suspect]
     Route: 065
     Dates: start: 20051201, end: 20060101

REACTIONS (4)
  - ALVEOLAR OSTEITIS [None]
  - DEATH [None]
  - DENTAL CARIES [None]
  - OSTEONECROSIS [None]
